FAERS Safety Report 7295142-X (Version None)
Quarter: 2011Q1

REPORT INFORMATION
  Report Type: 
  Country: None (occurrence: None)
  Receive Date: 20110216
  Receipt Date: 20110208
  Transmission Date: 20110831
  Serious: Yes (Hospitalization, Other)
  Sender: FDA-Public Use
  Company Number: SE-NOVOPROD-323167

PATIENT
  Sex: Male
  Weight: 20.3 kg

DRUGS (6)
  1. NORDITROPIN [Suspect]
     Indication: PRODUCT USED FOR UNKNOWN INDICATION
     Dosage: 0.5 MG, QD
     Route: 058
     Dates: start: 20080315, end: 20091115
  2. MERONEM [Concomitant]
     Dosage: UNK
     Route: 042
     Dates: start: 20110124, end: 20110126
  3. NORDITROPIN [Suspect]
     Dosage: 0.3 MG, QD
     Route: 058
     Dates: start: 20091115, end: 20110207
  4. VANCOMYCIN [Concomitant]
     Dosage: UNK
     Route: 042
     Dates: start: 20110124, end: 20110126
  5. FLORINEF [Concomitant]
     Dosage: 50 UNK, QD
     Route: 048
     Dates: start: 20110202
  6. CEFOTAXIME SODIUM [Concomitant]
     Dosage: 3 G, QD
     Route: 042
     Dates: start: 20110126

REACTIONS (2)
  - PRIMITIVE NEUROECTODERMAL TUMOUR [None]
  - MENINGITIS PNEUMOCOCCAL [None]
